FAERS Safety Report 4530092-0 (Version None)
Quarter: 2004Q4

REPORT INFORMATION
  Report Type: 
  Country: None (occurrence: None)
  Receive Date: 20041215
  Receipt Date: 20041208
  Transmission Date: 20050328
  Serious: Yes (Life-Threatening, Hospitalization)
  Sender: FDA-Public Use
  Company Number: 163-20785-04120267

PATIENT
  Age: 32 Year
  Sex: Male

DRUGS (1)
  1. THALOMID [Suspect]
     Indication: DRUG USE FOR UNKNOWN INDICATION
     Dosage: 400 MG, DAILY, ORAL
     Route: 048
     Dates: start: 20021203

REACTIONS (2)
  - AMNESIA [None]
  - RESPIRATORY ARREST [None]
